FAERS Safety Report 23101032 (Version 1)
Quarter: 2023Q4

REPORT INFORMATION
  Report Type: Spontaneous
  Country: US (occurrence: None)
  Receive Date: 20231021
  Receipt Date: 20231021
  Transmission Date: 20240110
  Serious: No
  Sender: FDA-Public Use
  Company Number: None

PATIENT
  Age: 63 Year
  Sex: Male
  Weight: 92.9 kg

DRUGS (1)
  1. WARFARIN SODIUM [Suspect]
     Active Substance: WARFARIN SODIUM
     Dosage: FREQUENCY : DAILY;?
     Route: 048
     Dates: start: 20170921

REACTIONS (4)
  - Diplopia [None]
  - Gait disturbance [None]
  - Cerebrovascular accident [None]
  - Ataxia [None]

NARRATIVE: CASE EVENT DATE: 20230107
